FAERS Safety Report 17787676 (Version 1)
Quarter: 2020Q2

REPORT INFORMATION
  Report Type: Spontaneous
  Country: GB (occurrence: GB)
  Receive Date: 20200514
  Receipt Date: 20200514
  Transmission Date: 20200714
  Serious: Yes (Death)
  Sender: FDA-Public Use
  Company Number: GB-ELI_LILLY_AND_COMPANY-GB202005003300

PATIENT

DRUGS (2)
  1. PACLITAXEL ALBUMIN [Suspect]
     Active Substance: PACLITAXEL
     Indication: ADENOCARCINOMA PANCREAS
     Dosage: 125 MG/M2, CYCLICAL (30MIN OF IV INFUSION IMMEDIATELY FOLLOWED BY GEMCITABINE) 6 CYCLES OF 4-WEEKLY
     Route: 042
  2. GEMCITABINE HYDROCHLORIDE. [Suspect]
     Active Substance: GEMCITABINE HYDROCHLORIDE
     Indication: ADENOCARCINOMA PANCREAS
     Dosage: 1000 MG/M2, CYCLICAL (IV INFUSION ON DAYS 1,8,AND 15 OF A 28-DAY CYCLE) 6 CYCLES OF 4 WEEKLY
     Route: 042

REACTIONS (2)
  - Febrile neutropenia [Fatal]
  - Off label use [Unknown]
